FAERS Safety Report 5551120-X (Version None)
Quarter: 2007Q4

REPORT INFORMATION
  Report Type: 
  Country: None (occurrence: None)
  Receive Date: 20071212
  Receipt Date: 20071210
  Transmission Date: 20080405
  Serious: Yes (Other)
  Sender: FDA-Public Use
  Company Number: B0495002A

PATIENT
  Sex: Male
  Weight: 75 kg

DRUGS (7)
  1. LAMICTAL [Suspect]
     Indication: EPILEPSY
     Dosage: 200MG TWICE PER DAY
     Route: 048
     Dates: start: 20071103, end: 20071107
  2. LAMICTAL [Concomitant]
     Route: 048
  3. EPITOMAX [Concomitant]
     Dosage: 100MG TWICE PER DAY
     Route: 048
  4. URBANYL [Concomitant]
     Dosage: 10MG FOUR TIMES PER DAY
     Route: 048
  5. PLAVIX [Concomitant]
     Dosage: 75MG PER DAY
     Route: 048
  6. PRAXILENE [Concomitant]
     Dosage: 200MG TWICE PER DAY
     Route: 048
  7. TEGRETOL [Concomitant]
     Dosage: 400MG TWICE PER DAY
     Route: 048

REACTIONS (6)
  - AGGRESSION [None]
  - BALANCE DISORDER [None]
  - DIZZINESS [None]
  - FALL [None]
  - PERSONALITY CHANGE [None]
  - PHARMACEUTICAL PRODUCT COMPLAINT [None]
